FAERS Safety Report 15904486 (Version 2)
Quarter: 2019Q1

REPORT INFORMATION
  Report Type: Report from Study
  Country: US (occurrence: US)
  Receive Date: 20190204
  Receipt Date: 20190304
  Transmission Date: 20190417
  Serious: Yes (Hospitalization)
  Sender: FDA-Public Use
  Company Number: US-TESAROUBC-2019-TSO00683-US

PATIENT
  Age: 68 Year
  Sex: Female

DRUGS (1)
  1. ZEJULA [Suspect]
     Active Substance: NIRAPARIB
     Indication: FALLOPIAN TUBE CANCER
     Dosage: 200 MG, QPM WITH FOOD
     Route: 048
     Dates: start: 20181207

REACTIONS (6)
  - Pyrexia [Unknown]
  - Blood potassium decreased [Unknown]
  - Heart rate increased [Unknown]
  - Nausea [Unknown]
  - Device related infection [Unknown]
  - Asthenia [Unknown]

NARRATIVE: CASE EVENT DATE: 201901
